FAERS Safety Report 9556303 (Version 2)
Quarter: 2014Q3

REPORT INFORMATION
  Report Type: Spontaneous
  Country: US (occurrence: None)
  Receive Date: 20130815
  Receipt Date: 20140815
  Transmission Date: 20150326
  Serious: Yes (Other)
  Sender: FDA-Public Use
  Company Number: ADR-2013-00423

PATIENT
  Sex: Female

DRUGS (4)
  1. BUPIVACAINE [Concomitant]
     Active Substance: BUPIVACAINE
  2. FENTANYL. [Suspect]
     Active Substance: FENTANYL
  3. DILAUDID [Concomitant]
     Active Substance: HYDROMORPHONE HYDROCHLORIDE
  4. BACLOFEN. [Suspect]
     Active Substance: BACLOFEN
     Indication: PAIN

REACTIONS (7)
  - Blood pressure increased [None]
  - Dysarthria [None]
  - Confusional state [None]
  - Dizziness [None]
  - Somnolence [None]
  - Overdose [None]
  - Heart rate increased [None]
